FAERS Safety Report 9934883 (Version 1)
Quarter: 2014Q1

REPORT INFORMATION
  Report Type: Spontaneous
  Country: US (occurrence: US)
  Receive Date: 20140228
  Receipt Date: 20140228
  Transmission Date: 20141002
  Serious: Yes (Hospitalization)
  Sender: FDA-Public Use
  Company Number: US-BAYER-2014-027567

PATIENT
  Sex: Female

DRUGS (1)
  1. MIRENA [Suspect]
     Indication: CONTRACEPTION
     Dosage: 20 MCG/24HR, CONT
     Route: 015
     Dates: start: 2010

REACTIONS (12)
  - Dyspareunia [None]
  - Coital bleeding [None]
  - Pelvic inflammatory disease [None]
  - Medical device discomfort [None]
  - Vulvovaginal pain [None]
  - Procedural pain [None]
  - Vulvovaginal swelling [None]
  - Toxic shock syndrome [None]
  - Cyst [None]
  - Device expulsion [None]
  - Loss of consciousness [None]
  - Infection [None]
